FAERS Safety Report 11023096 (Version 10)
Quarter: 2017Q3

REPORT INFORMATION
  Report Type: Report from Study
  Country: None (occurrence: US)
  Receive Date: 20150413
  Receipt Date: 20170706
  Transmission Date: 20171127
  Serious: Yes (Hospitalization)
  Sender: FDA-Public Use
  Company Number: US-ABBVIE-15P-163-1373435-00

PATIENT
  Age: 70 Year
  Sex: Male

DRUGS (35)
  1. GLUCOTROL [Concomitant]
     Active Substance: GLIPIZIDE
     Indication: DIABETES MELLITUS
     Route: 048
     Dates: start: 2009
  2. COLCHICINE. [Concomitant]
     Active Substance: COLCHICINE
     Indication: GOUT
     Route: 048
     Dates: start: 20141029
  3. ASPIRIN. [Concomitant]
     Active Substance: ASPIRIN
     Indication: DYSLIPIDAEMIA
     Route: 048
     Dates: start: 200407
  4. LANOXIN [Concomitant]
     Active Substance: DIGOXIN
     Indication: CARDIAC FAILURE CONGESTIVE
  5. FOLIC ACID. [Concomitant]
     Active Substance: FOLIC ACID
     Indication: ANAEMIA
     Route: 048
     Dates: start: 20140304
  6. LYRICA [Concomitant]
     Active Substance: PREGABALIN
     Indication: NECK PAIN
     Route: 048
     Dates: start: 20140603
  7. HUMIRA [Suspect]
     Active Substance: ADALIMUMAB
     Route: 058
  8. ASPIRIN. [Concomitant]
     Active Substance: ASPIRIN
     Indication: MYOCARDIAL INFARCTION
  9. CALCIUM-VITAMIN D [Concomitant]
     Indication: ROUTINE HEALTH MAINTENANCE
     Dosage: OCCLUSIVE DRESSING TECHNIQUE
     Dates: start: 2007
  10. COREG [Concomitant]
     Active Substance: CARVEDILOL
     Indication: CARDIAC FAILURE CONGESTIVE
  11. FISH OIL [Concomitant]
     Active Substance: FISH OIL
     Indication: DYSLIPIDAEMIA
     Route: 048
     Dates: start: 2004
  12. ALDACTONE [Concomitant]
     Active Substance: SPIRONOLACTONE
     Indication: CARDIAC FAILURE CONGESTIVE
     Route: 048
     Dates: start: 2004
  13. MAGNESIUM [Concomitant]
     Active Substance: MAGNESIUM
     Indication: HYPOMAGNESAEMIA
     Route: 048
     Dates: start: 20140521
  14. HUMIRA [Suspect]
     Active Substance: ADALIMUMAB
     Dosage: WEEK 2
     Route: 058
  15. LANTUS [Concomitant]
     Active Substance: INSULIN GLARGINE
     Indication: DIABETES MELLITUS
     Route: 058
     Dates: start: 2012
  16. GLUCOPHAGE [Concomitant]
     Active Substance: METFORMIN HYDROCHLORIDE
     Indication: DIABETES MELLITUS
     Route: 048
     Dates: start: 2007
  17. ZOCOR [Concomitant]
     Active Substance: SIMVASTATIN
     Indication: DYSLIPIDAEMIA
     Route: 048
     Dates: start: 200407
  18. COUMADIN [Concomitant]
     Active Substance: WARFARIN SODIUM
     Indication: ATRIAL FIBRILLATION
     Dates: start: 200407
  19. LIALDA [Concomitant]
     Active Substance: MESALAMINE
     Indication: COLITIS ULCERATIVE
     Route: 048
     Dates: start: 201205
  20. COLCHICINE. [Concomitant]
     Active Substance: COLCHICINE
     Indication: PROPHYLAXIS
  21. HUMIRA [Suspect]
     Active Substance: ADALIMUMAB
     Route: 058
     Dates: start: 20131209
  22. COREG [Concomitant]
     Active Substance: CARVEDILOL
     Indication: ATRIAL FIBRILLATION
     Dosage: QAM; TID PM
     Dates: start: 200407
  23. LANOXIN [Concomitant]
     Active Substance: DIGOXIN
     Indication: ATRIAL FIBRILLATION
     Route: 048
     Dates: start: 200407
  24. NITROGLYCERIN. [Concomitant]
     Active Substance: NITROGLYCERIN
     Indication: ISCHAEMIC CARDIOMYOPATHY
  25. PRILOSEC [Concomitant]
     Active Substance: OMEPRAZOLE MAGNESIUM
     Indication: GASTROOESOPHAGEAL REFLUX DISEASE
     Route: 048
     Dates: start: 2007
  26. FERROUS SULFATE. [Concomitant]
     Active Substance: FERROUS SULFATE
     Indication: COLITIS ULCERATIVE
     Route: 048
     Dates: start: 201408
  27. HUMIRA [Suspect]
     Active Substance: ADALIMUMAB
     Indication: COLITIS ULCERATIVE
     Dosage: BASELINE
     Route: 058
     Dates: start: 20130930, end: 20130930
  28. LASIX [Concomitant]
     Active Substance: FUROSEMIDE
     Indication: CARDIAC FAILURE CONGESTIVE
     Route: 048
     Dates: start: 2004
  29. OXYCODONE [Concomitant]
     Active Substance: OXYCODONE
     Indication: NECK PAIN
     Route: 048
     Dates: start: 2012
  30. SENIOR MULTIVITAMIN [Concomitant]
     Indication: ROUTINE HEALTH MAINTENANCE
     Route: 048
     Dates: start: 2014
  31. LOPID [Concomitant]
     Active Substance: GEMFIBROZIL
     Indication: DYSLIPIDAEMIA
     Route: 048
     Dates: start: 2004
  32. CLARITIN [Concomitant]
     Active Substance: LORATADINE
     Indication: RHINITIS ALLERGIC
     Route: 048
     Dates: start: 2010
  33. NITROGLYCERIN. [Concomitant]
     Active Substance: NITROGLYCERIN
     Indication: MYOCARDIAL INFARCTION
     Route: 060
     Dates: start: 200407
  34. ALLOPURINOL. [Concomitant]
     Active Substance: ALLOPURINOL
     Indication: GOUT
     Route: 048
     Dates: start: 20141029
  35. ALLOPURINOL. [Concomitant]
     Active Substance: ALLOPURINOL
     Indication: PROPHYLAXIS

REACTIONS (2)
  - Gout [Recovered/Resolved]
  - Cellulitis [Recovered/Resolved]

NARRATIVE: CASE EVENT DATE: 20141224
